FAERS Safety Report 23295330 (Version 2)
Quarter: 2024Q1

REPORT INFORMATION
  Report Type: Spontaneous
  Country: FR (occurrence: None)
  Receive Date: 20231214
  Receipt Date: 20240123
  Transmission Date: 20240410
  Serious: Yes (Other)
  Sender: FDA-Public Use
  Company Number: 2023A280995

PATIENT
  Sex: Female

DRUGS (2)
  1. SAPHNELO [Suspect]
     Active Substance: ANIFROLUMAB\ANIFROLUMAB-FNIA
     Indication: Systemic lupus erythematosus
     Route: 041
  2. BELIMULAB+THALIDOMIDE [Concomitant]

REACTIONS (3)
  - Chest pain [Recovering/Resolving]
  - Pericarditis [Recovering/Resolving]
  - Herpes simplex reactivation [Unknown]
